FAERS Safety Report 25960729 (Version 2)
Quarter: 2025Q4

REPORT INFORMATION
  Report Type: Report from Study
  Country: US (occurrence: US)
  Receive Date: 20251027
  Receipt Date: 20251124
  Transmission Date: 20260117
  Serious: Yes (Hospitalization)
  Sender: RECORDATI
  Company Number: US-ORPHANEU-2025007533

PATIENT
  Age: 58 Year
  Sex: Female
  Weight: 57.143 kg

DRUGS (25)
  1. ISTURISA [Suspect]
     Active Substance: OSILODROSTAT PHOSPHATE
     Indication: Ectopic ACTH syndrome
     Dosage: 1 MG, BID  (1 MG TABLET)
     Route: 048
     Dates: start: 20250919, end: 20250925
  2. ISTURISA [Suspect]
     Active Substance: OSILODROSTAT PHOSPHATE
     Dosage: 15 MG, BID (5 MG TABLET)
     Route: 048
     Dates: start: 20250925, end: 20251021
  3. ISTURISA [Suspect]
     Active Substance: OSILODROSTAT PHOSPHATE
     Dosage: 10 MG, BID (5 MG TABLET)
     Route: 048
     Dates: start: 20251021, end: 202511
  4. ISTURISA [Suspect]
     Active Substance: OSILODROSTAT PHOSPHATE
     Dosage: 10 MG, BID (5 MG TABLET)
     Route: 048
     Dates: start: 202511
  5. ETOMIDATE [Concomitant]
     Active Substance: ETOMIDATE
     Indication: Product used for unknown indication
     Dosage: 6.8 MG/HR, DAILY, (INTRAVENOUS SOLUTION 2 MG)
     Route: 042
     Dates: start: 20250919
  6. OCTREOTIDE ACETATE [Concomitant]
     Active Substance: OCTREOTIDE ACETATE
     Indication: Product used for unknown indication
     Dosage: 50MCG/HR, CONTINUOUS, INJECTION SOLUTION
     Dates: start: 20250919
  7. HYDRALAZINE HCL [Concomitant]
     Active Substance: HYDRALAZINE HYDROCHLORIDE
     Indication: Product used for unknown indication
     Dosage: 100 MG, BID, TABLET 100 MG
     Route: 048
     Dates: start: 20250821
  8. HYDRALAZINE HCL [Concomitant]
     Active Substance: HYDRALAZINE HYDROCHLORIDE
     Dosage: 20 MG/ML AS NEEDED (INJECTION SOLUTION)
     Dates: start: 20250913
  9. INSULIN GLARGINE [Concomitant]
     Active Substance: INSULIN GLARGINE
     Indication: Product used for unknown indication
     Dosage: 100 UNIT/ML, DAILY (HS), SOLUTION
     Route: 058
     Dates: start: 20250919
  10. INSULIN LISPRO [Concomitant]
     Active Substance: INSULIN LISPRO
     Indication: Product used for unknown indication
     Dosage: 100 UNIT/ML, THREE TIMES DAILY, INJECTION SOLUTION
     Dates: start: 20250918
  11. Cvs melatonin [Concomitant]
     Indication: Product used for unknown indication
     Dosage: 5 MG, QD (HS), TABLET 5 MG
     Route: 048
     Dates: start: 20240919
  12. NYSTATIN [Concomitant]
     Active Substance: NYSTATIN
     Indication: Product used for unknown indication
     Dosage: 100000, AS NEEDED, MOUTH/THROAT SUSPENSION
     Route: 048
     Dates: start: 20250912
  13. PANTOPRAZOLE SODIUM [Concomitant]
     Active Substance: PANTOPRAZOLE SODIUM
     Indication: Product used for unknown indication
     Dosage: 40 MG, BID, SOLUTION
     Route: 042
     Dates: start: 20250913
  14. POLYETHYLENE GLYCOL 3350 [Concomitant]
     Active Substance: POLYETHYLENE GLYCOL 3350
     Indication: Product used for unknown indication
     Dosage: 17 GRAM, DAILY
     Route: 048
     Dates: start: 20250919
  15. POTASSIUM CHLORIDE [Concomitant]
     Active Substance: POTASSIUM CHLORIDE
     Indication: Product used for unknown indication
     Dosage: 20 MILLIEQUIVALENT, DAILY, TABLET ER
     Route: 048
     Dates: start: 20250919
  16. AMLODIPINE BESYLATE [Concomitant]
     Active Substance: AMLODIPINE BESYLATE
     Indication: Product used for unknown indication
     Dosage: 10 MG, QD, TABLET 10
     Route: 048
     Dates: start: 20240919
  17. ATORVASTATIN CALCIUM [Concomitant]
     Active Substance: ATORVASTATIN CALCIUM
     Indication: Product used for unknown indication
     Dosage: 10 MG, QD, TABLET 10
     Route: 048
     Dates: start: 20250604
  18. CAPECITABINE [Concomitant]
     Active Substance: CAPECITABINE
     Indication: Product used for unknown indication
     Dosage: 500 MG, 2 WEEKS PER MONTH, TABLET 500 MG
     Route: 048
     Dates: start: 20240919
  19. ERGOCALCIFEROL [Concomitant]
     Active Substance: ERGOCALCIFEROL
     Indication: Product used for unknown indication
     Dosage: 1.25 MG, QW, CAPSULE 1.25 MG
     Route: 048
     Dates: start: 20250821
  20. FAMOTIDINE [Concomitant]
     Active Substance: FAMOTIDINE
     Indication: Product used for unknown indication
     Dosage: 40 MG, QD (HS), TABLET 40 MG
     Route: 048
     Dates: start: 20240919
  21. GABAPENTIN [Concomitant]
     Active Substance: GABAPENTIN
     Indication: Product used for unknown indication
     Dosage: 300 MG, BID, CAPSULE 300 MG
     Route: 048
     Dates: start: 20250827
  22. ONDANSETRON HYDROCHLORIDE [Concomitant]
     Active Substance: ONDANSETRON HYDROCHLORIDE
     Indication: Product used for unknown indication
     Dosage: 8 MG, PRN, TABLET 8 MG
     Route: 048
     Dates: start: 20250827
  23. SPIRONOLACTONE [Concomitant]
     Active Substance: SPIRONOLACTONE
     Indication: Product used for unknown indication
     Dosage: 25 MG, QD, TABLET 25 MG
     Route: 048
     Dates: start: 20240827
  24. TEMOZOLOMIDE [Concomitant]
     Active Substance: TEMOZOLOMIDE
     Indication: Product used for unknown indication
     Dosage: 100 MG, BID 10 DAYS OFF 14, CAPSULE 100 MG
     Route: 048
     Dates: start: 20250827
  25. ENOXAPARIN SODIUM [Concomitant]
     Active Substance: ENOXAPARIN SODIUM
     Indication: Product used for unknown indication
     Dosage: 40 MG/0.4ML, DAILY, INJECTION SOLUTION
     Dates: start: 20250827

REACTIONS (7)
  - Gastrointestinal haemorrhage [Unknown]
  - Vomiting [Recovered/Resolved]
  - Hypotension [Unknown]
  - Hypotension [Recovering/Resolving]
  - Vomiting [Not Recovered/Not Resolved]
  - Weight decreased [Not Recovered/Not Resolved]
  - Decreased appetite [Unknown]

NARRATIVE: CASE EVENT DATE: 20251011
